FAERS Safety Report 25136286 (Version 1)
Quarter: 2025Q1

REPORT INFORMATION
  Report Type: Spontaneous
  Country: ES (occurrence: ES)
  Receive Date: 20250328
  Receipt Date: 20250328
  Transmission Date: 20250409
  Serious: Yes (Other)
  Sender: AMGEN
  Company Number: ES-AMGEN-ESPSP2025058193

PATIENT

DRUGS (1)
  1. BLINATUMOMAB [Suspect]
     Active Substance: BLINATUMOMAB
     Indication: Acute lymphocytic leukaemia recurrent
     Route: 065

REACTIONS (16)
  - Diabetes mellitus [Unknown]
  - Hypothyroidism [Unknown]
  - Cataract [Unknown]
  - Autoimmune disorder [Unknown]
  - Skin cancer [Unknown]
  - Pericarditis [Unknown]
  - Hepatitis C [Unknown]
  - Dyslipidaemia [Unknown]
  - Sexual dysfunction [Unknown]
  - Osteopenia [Unknown]
  - Osteoporosis [Unknown]
  - Neoplasm [Unknown]
  - Ischaemia [Unknown]
  - Renal disorder [Unknown]
  - Hyperferritinaemia [Unknown]
  - Hypertension [Unknown]
